FAERS Safety Report 6477399-8 (Version None)
Quarter: 2009Q4

REPORT INFORMATION
  Report Type: 
  Country: None (occurrence: None)
  Receive Date: 20091207
  Receipt Date: 20080902
  Transmission Date: 20100525
  Serious: Yes (Hospitalization, Other)
  Sender: FDA-Public Use
  Company Number: US-SANOFI-AVENTIS-200416123US

PATIENT
  Age: 30 Year
  Sex: Female
  Weight: 74.54 kg

DRUGS (25)
  1. ENOXAPARIN SODIUM [Suspect]
     Indication: DEEP VEIN THROMBOSIS
     Route: 058
     Dates: start: 20020731, end: 20020801
  2. ENOXAPARIN SODIUM [Suspect]
     Route: 058
     Dates: start: 20030219, end: 20030221
  3. ENOXAPARIN SODIUM [Suspect]
     Dates: start: 20030201, end: 20030724
  4. ENOXAPARIN SODIUM [Suspect]
     Route: 058
     Dates: end: 20030701
  5. ENOXAPARIN SODIUM [Suspect]
     Route: 058
     Dates: start: 20030728, end: 20030728
  6. ENOXAPARIN SODIUM [Suspect]
     Route: 058
     Dates: start: 20060728
  7. ENOXAPARIN SODIUM [Suspect]
     Dosage: DOSE AS USED: UNK
     Dates: end: 20041025
  8. ENOXAPARIN SODIUM [Suspect]
     Dosage: DOSE AS USED: UNK
     Dates: start: 20030224
  9. NUBAIN [Concomitant]
     Route: 042
     Dates: start: 20030727, end: 20030727
  10. OXYTOCIN [Concomitant]
     Dosage: DOSE AS USED: 20/1000CC LR U
     Route: 042
     Dates: start: 20030727, end: 20030727
  11. PERCOCET [Concomitant]
     Dosage: DOSE AS USED: 2 TABLETS
     Dates: start: 20030727
  12. XANAX [Concomitant]
  13. DEMEROL [Concomitant]
     Dates: start: 20030728
  14. DILAUDID [Concomitant]
     Route: 042
     Dates: start: 20030728, end: 20030728
  15. ATIVAN [Concomitant]
     Route: 042
  16. PROMETHAZINE HCL [Concomitant]
     Route: 030
     Dates: start: 20030728
  17. PARACETAMOL [Concomitant]
     Route: 048
     Dates: start: 20030727
  18. VITAMINS [Concomitant]
     Dosage: DOSE AS USED: UNK
  19. COUMADIN [Concomitant]
     Dates: start: 20020701, end: 20021001
  20. COUMADIN [Concomitant]
     Dosage: DOSE AS USED: 10MG, 2MG
     Dates: start: 20031106, end: 20040318
  21. ACIDOPHILUS ^ZYMA^ [Concomitant]
  22. AMBIEN [Concomitant]
  23. ZOFRAN [Concomitant]
     Dosage: DOSE AS USED: UNK
     Dates: start: 20031001
  24. ASPIRIN [Concomitant]
     Dosage: DOSE AS USED: UNK
  25. ASPIRIN [Concomitant]
     Dosage: DOSE UNIT: 81 MG
     Dates: end: 20041028

REACTIONS (35)
  - ABDOMINAL PAIN [None]
  - ALANINE AMINOTRANSFERASE INCREASED [None]
  - ARTHRALGIA [None]
  - ASPARTATE AMINOTRANSFERASE INCREASED [None]
  - BLOOD ALBUMIN DECREASED [None]
  - BLOOD ALKALINE PHOSPHATASE INCREASED [None]
  - BLOOD MAGNESIUM DECREASED [None]
  - CHORIOAMNIONITIS [None]
  - CONTUSION [None]
  - DIARRHOEA [None]
  - DRUG INEFFECTIVE [None]
  - FATIGUE [None]
  - GASTROINTESTINAL HAEMORRHAGE [None]
  - GINGIVAL BLEEDING [None]
  - HAEMATOCRIT DECREASED [None]
  - HAEMATURIA [None]
  - HAEMOGLOBIN DECREASED [None]
  - HOSPITALISATION [None]
  - INJECTION SITE PAIN [None]
  - LETHARGY [None]
  - LIVER FUNCTION TEST ABNORMAL [None]
  - MUSCULOSKELETAL CHEST PAIN [None]
  - ORAL INFECTION [None]
  - PHLEBITIS [None]
  - PLACENTAL INFARCTION [None]
  - PLACENTAL INSUFFICIENCY [None]
  - PLATELET COUNT INCREASED [None]
  - PLEURISY [None]
  - RED BLOOD CELL MORPHOLOGY ABNORMAL [None]
  - RIB FRACTURE [None]
  - SKELETAL INJURY [None]
  - UMBILICAL CORD ABNORMALITY [None]
  - URINARY TRACT INFECTION [None]
  - VASCULITIS [None]
  - WHITE BLOOD CELL COUNT INCREASED [None]
